FAERS Safety Report 7406918-X (Version None)
Quarter: 2011Q2

REPORT INFORMATION
  Report Type: 
  Country: None (occurrence: None)
  Receive Date: 20110411
  Receipt Date: 20110328
  Transmission Date: 20111010
  Serious: Yes (Hospitalization, Other)
  Sender: FDA-Public Use
  Company Number: US-CELGENEUS-163-21880-11011576

PATIENT
  Sex: Male
  Weight: 91.2 kg

DRUGS (28)
  1. FLEXERIL [Concomitant]
     Route: 048
  2. MAGNESIUM [Concomitant]
     Dosage: 500 MILLIGRAM
     Route: 048
  3. VALTREX [Concomitant]
     Dosage: 1000 MILLIGRAM
     Route: 048
  4. ALBUTEROL SULFATE [Concomitant]
     Route: 055
  5. ADULT ASPIRIN LOW STRENGTH [Concomitant]
     Route: 048
  6. MOBIC [Concomitant]
     Dosage: 7.5 MILLIGRAM
     Route: 048
  7. PROTONIX [Concomitant]
     Dosage: 40 MILLIGRAM
     Route: 048
  8. PULMICORT [Concomitant]
     Route: 055
  9. BENADRYL [Concomitant]
     Dosage: 25 MILLIGRAM
     Route: 065
     Dates: start: 20100706
  10. NEURONTIN [Concomitant]
     Route: 048
     Dates: end: 20100608
  11. CARIMUNE NF [Concomitant]
     Dosage: 1 GRAM
     Route: 051
  12. SPIRIVA [Concomitant]
     Route: 055
  13. AMOXICILLIN [Concomitant]
     Route: 048
     Dates: end: 20101026
  14. POTASSIUM CHLORIDE [Concomitant]
     Dosage: 20 MILLIEQUIVALENTS
     Route: 048
     Dates: end: 20101026
  15. CARIMUNE NF [Concomitant]
     Dosage: 1 GRAM
     Route: 051
     Dates: start: 20100706
  16. TESSALON [Concomitant]
     Route: 048
  17. BENADRYL [Concomitant]
     Route: 065
     Dates: start: 20101012
  18. ADVAIR DISKUS 100/50 [Concomitant]
     Route: 065
  19. REVLIMID [Suspect]
     Indication: MANTLE CELL LYMPHOMA
     Dosage: 25 MILLIGRAM
     Route: 048
     Dates: start: 20071016, end: 20101218
  20. ACETAMINOPHEN [Concomitant]
     Route: 065
     Dates: start: 20100706
  21. ALLEGRA [Concomitant]
     Dosage: 180 MILLIGRAM
     Route: 048
  22. AMBIEN [Concomitant]
     Route: 048
  23. ATIVAN [Concomitant]
     Route: 048
  24. CALCIUM WITH VITAMIN D [Concomitant]
     Route: 048
  25. HYDROCHLOROTHIAZIDE [Concomitant]
     Dosage: 25 MILLIGRAM
     Route: 048
  26. LEXAPRO [Concomitant]
     Dosage: 20 MILLIGRAM
     Route: 048
  27. WELLBUTRIN XL [Concomitant]
     Dosage: 300 MILLIGRAM
     Route: 048
  28. SEPTRA [Concomitant]
     Route: 048
     Dates: end: 20101026

REACTIONS (3)
  - ACUTE LYMPHOCYTIC LEUKAEMIA [None]
  - BLOOD DISORDER [None]
  - PULMONARY EMBOLISM [None]
